FAERS Safety Report 11778650 (Version 1)
Quarter: 2015Q4

REPORT INFORMATION
  Report Type: Other
  Country: GB (occurrence: IN)
  Receive Date: 20151125
  Receipt Date: 20151125
  Transmission Date: 20160304
  Serious: Yes (Other)
  Sender: FDA-Public Use
  Company Number: IN-CLARIS PHARMASERVICES-1044651

PATIENT
  Age: 12 Year
  Sex: Male

DRUGS (1)
  1. HALOPERIDOL. [Suspect]
     Active Substance: HALOPERIDOL
     Indication: TIC
     Route: 048

REACTIONS (1)
  - Condition aggravated [Recovering/Resolving]
